FAERS Safety Report 14581327 (Version 1)
Quarter: 2018Q1

REPORT INFORMATION
  Report Type: Spontaneous
  Country: FR (occurrence: FR)
  Receive Date: 20180228
  Receipt Date: 20180228
  Transmission Date: 20180509
  Serious: Yes (Hospitalization)
  Sender: FDA-Public Use
  Company Number: PHHY2018FR033050

PATIENT
  Age: 73 Year
  Sex: Female
  Weight: 75 kg

DRUGS (1)
  1. GLIVEC [Suspect]
     Active Substance: IMATINIB MESYLATE
     Indication: CHRONIC MYELOID LEUKAEMIA
     Dosage: 400 MG, QD
     Route: 048
     Dates: start: 20160802

REACTIONS (2)
  - Arthralgia [Not Recovered/Not Resolved]
  - Amnestic disorder [Not Recovered/Not Resolved]

NARRATIVE: CASE EVENT DATE: 20170701
